FAERS Safety Report 5275493-0 (Version None)
Quarter: 2007Q1

REPORT INFORMATION
  Report Type: 
  Country: None (occurrence: None)
  Receive Date: 20070326
  Receipt Date: 20070314
  Transmission Date: 20070707
  Serious: Yes (Other)
  Sender: FDA-Public Use
  Company Number: JP-ROCHE-488196

PATIENT
  Age: 11 Year
  Sex: Male

DRUGS (3)
  1. TAMIFLU [Suspect]
     Route: 048
     Dates: start: 20070309, end: 20070313
  2. CODEINE PHOSPHATE [Concomitant]
     Route: 065
  3. MISCELLANEOUS GASTROINTESTINAL AGENT NOS [Concomitant]
     Dosage: REPORTED AS COMBINED GASTROINTESTINAL AGENTS ().
     Route: 065

REACTIONS (1)
  - MYALGIA [None]
